FAERS Safety Report 24623450 (Version 3)
Quarter: 2024Q4

REPORT INFORMATION
  Report Type: Report from Study
  Country: GB (occurrence: GB)
  Receive Date: 20241115
  Receipt Date: 20241231
  Transmission Date: 20250114
  Serious: No
  Sender: SANDOZ
  Company Number: GB-002147023-NVSC2020GB089651

PATIENT
  Sex: Male

DRUGS (4)
  1. OMNITROPE [Suspect]
     Active Substance: SOMATROPIN
     Dosage: 0.60 MG, QD
     Route: 058
  2. OMNITROPE [Suspect]
     Active Substance: SOMATROPIN
     Dosage: 0.6 MG, QD
     Route: 058
     Dates: start: 20201026
  3. OMNITROPE [Suspect]
     Active Substance: SOMATROPIN
     Indication: Hypopituitarism
     Dosage: 1 MG, QD
     Route: 058
     Dates: start: 20200325
  4. OMNITROPE [Suspect]
     Active Substance: SOMATROPIN
     Indication: Growth hormone deficiency
     Dosage: 1.1 MG, QD
     Route: 058

REACTIONS (14)
  - Pain in extremity [Unknown]
  - Back pain [Unknown]
  - Spinal pain [Unknown]
  - Arthralgia [Unknown]
  - Injection site bruising [Unknown]
  - Headache [Unknown]
  - Tremor [Unknown]
  - Product dose omission issue [Unknown]
  - Product label issue [Unknown]
  - Incorrect dose administered [Unknown]
  - Product administration interrupted [Unknown]
  - Liquid product physical issue [Unknown]
  - Drug dose omission by device [Unknown]
  - Device use issue [Unknown]
